FAERS Safety Report 10246143 (Version 1)
Quarter: 2014Q2

REPORT INFORMATION
  Report Type: Spontaneous
  Country: US (occurrence: None)
  Receive Date: 20140617
  Receipt Date: 20140617
  Transmission Date: 20141212
  Serious: No
  Sender: FDA-Public Use
  Company Number: None

PATIENT
  Age: 71 Year
  Sex: Male
  Weight: 108.86 kg

DRUGS (1)
  1. KLOR-CON [Suspect]
     Dosage: 8 MEQ@ 3 A DAY THREE TIMES DAILY TAKEN BY MOUTH
     Route: 048

REACTIONS (4)
  - Product solubility abnormal [None]
  - Medication residue present [None]
  - Drug ineffective [None]
  - Product quality issue [None]
